FAERS Safety Report 6133828-0 (Version None)
Quarter: 2009Q1

REPORT INFORMATION
  Report Type: 
  Country: None (occurrence: None)
  Receive Date: 20090326
  Receipt Date: 20090320
  Transmission Date: 20090719
  Serious: Yes (Hospitalization)
  Sender: FDA-Public Use
  Company Number: GB-AVENTIS-200911653GDDC

PATIENT
  Sex: Female

DRUGS (2)
  1. APIDRA [Suspect]
     Dates: start: 20081101
  2. LANTUS [Suspect]
     Route: 058

REACTIONS (5)
  - ANXIETY [None]
  - DRUG DISPENSING ERROR [None]
  - HYPOGLYCAEMIA [None]
  - PRODUCT QUALITY ISSUE [None]
  - WRONG DRUG ADMINISTERED [None]
